FAERS Safety Report 7038245-7 (Version None)
Quarter: 2010Q4

REPORT INFORMATION
  Report Type: 
  Country: None (occurrence: None)
  Receive Date: 20101011
  Receipt Date: 20091127
  Transmission Date: 20110411
  Serious: No
  Sender: FDA-Public Use
  Company Number: US-PFIZER INC-2009304313

PATIENT
  Sex: Male
  Weight: 63 kg

DRUGS (1)
  1. GABAPENTIN [Suspect]
     Indication: PRURITUS
     Dosage: 100 MG, 1X/DAY
     Route: 048
     Dates: start: 20091124

REACTIONS (1)
  - SOMNOLENCE [None]
